FAERS Safety Report 5045691-X (Version None)
Quarter: 2006Q3

REPORT INFORMATION
  Report Type: 
  Country: None (occurrence: None)
  Receive Date: 20060707
  Receipt Date: 20060612
  Transmission Date: 20061208
  Serious: Yes (Other)
  Sender: FDA-Public Use
  Company Number: JP-MERCK-0607USA00077

PATIENT
  Age: 75 Year
  Sex: Male
  Weight: 60 kg

DRUGS (2)
  1. SINGULAIR [Suspect]
     Route: 048
     Dates: start: 20060525, end: 20060530
  2. ONON [Concomitant]
     Route: 048
     Dates: start: 20060511, end: 20060524

REACTIONS (1)
  - ARRHYTHMIA [None]
